FAERS Safety Report 5372264-1 (Version None)
Quarter: 2007Q2

REPORT INFORMATION
  Report Type: 
  Country: None (occurrence: None)
  Receive Date: 20070620
  Receipt Date: 20070212
  Transmission Date: 20071010
  Serious: No
  Sender: FDA-Public Use
  Company Number: 2007RL000060

PATIENT
  Age: 63 Year
  Sex: Male
  Weight: 113.3993 kg

DRUGS (11)
  1. OMACOR [Suspect]
     Indication: BLOOD CHOLESTEROL INCREASED
     Dosage: 4 GM;QD;PO
     Route: 048
     Dates: start: 20070101
  2. AVONEX [Concomitant]
  3. DIOVAN [Concomitant]
  4. HYDROCHLOROTHIAZIDE [Concomitant]
  5. SYMMETREL [Concomitant]
  6. CELEBREX [Concomitant]
  7. SYNTHROID [Concomitant]
  8. UROCIT-K [Concomitant]
  9. HALOPERIDOL [Concomitant]
  10. POTASSIUM CHLORIDE [Concomitant]
  11. TRICOR [Concomitant]

REACTIONS (1)
  - MICTURITION URGENCY [None]
